FAERS Safety Report 9517823 (Version 1)
Quarter: 2013Q3

REPORT INFORMATION
  Report Type: Spontaneous
  Country: CA (occurrence: None)
  Receive Date: 20130910
  Receipt Date: 20130910
  Transmission Date: 20140515
  Serious: Yes (Other)
  Sender: FDA-Public Use
  Company Number: 2013000224

PATIENT
  Age: 51 Year
  Sex: Female

DRUGS (1)
  1. ACEON (PERINDOPRIL ERBUMINE) TABLET, 2MG [Suspect]
     Indication: PRODUCT USED FOR UNKNOWN INDICATION
     Route: 048

REACTIONS (5)
  - Vaginal haemorrhage [None]
  - Diarrhoea [None]
  - Food intolerance [None]
  - Alcohol intolerance [None]
  - Cough [None]
